FAERS Safety Report 8784523 (Version 2)
Quarter: 2013Q2

REPORT INFORMATION
  Report Type: Spontaneous
  Country: DE (occurrence: DE)
  Receive Date: 20120913
  Receipt Date: 20130502
  Transmission Date: 20140414
  Serious: Yes (Other)
  Sender: FDA-Public Use
  Company Number: DE-AMGEN-DEUSP2012057275

PATIENT
  Age: 54 Year
  Sex: Male

DRUGS (5)
  1. ENBREL [Suspect]
     Indication: PSORIATIC ARTHROPATHY
     Dosage: 50 MG, WEEKLY
     Route: 058
     Dates: start: 20090501, end: 20120514
  2. GABAPENTIN [Concomitant]
     Dosage: UNK
  3. SIMVASTATIN [Concomitant]
     Dosage: UNK
  4. LIPONSAEURE-RATIOPHARM             /00213801/ [Concomitant]
     Dosage: UNK
  5. ARAVA [Concomitant]
     Dosage: ALTERNATE DAY

REACTIONS (1)
  - Arthritis [Not Recovered/Not Resolved]
